FAERS Safety Report 4720705-2 (Version None)
Quarter: 2005Q3

REPORT INFORMATION
  Report Type: 
  Country: None (occurrence: None)
  Receive Date: 20050719
  Receipt Date: 20050630
  Transmission Date: 20060218
  Serious: Yes (Hospitalization, Other)
  Sender: FDA-Public Use
  Company Number: US_0411107547

PATIENT
  Sex: Female
  Weight: 119 kg

DRUGS (22)
  1. ZYPREXA [Suspect]
     Dosage: 5 MG
     Dates: start: 20020201
  2. FLUOXETINE HCL [Concomitant]
  3. LOSARTAN [Concomitant]
  4. DIAZEPAM [Concomitant]
  5. HYDROXYZINE HCL [Concomitant]
  6. PREDNISONE [Concomitant]
  7. PAROXETINE HCL [Concomitant]
  8. ALPRAZOLAM [Concomitant]
  9. ESOMEPRAZOLE [Concomitant]
  10. METOCLOPRAMIDE [Concomitant]
  11. PANTOPRAZOLE [Concomitant]
  12. ACETAMINOPHEN W/HYDROCODONE [Concomitant]
  13. NAPROXEN SODIUM [Concomitant]
  14. LORATADINE [Concomitant]
  15. POTASSIUM CHLORIDE [Concomitant]
  16. FUROSEMIDE (FUROSEMIDE) [Concomitant]
  17. EZETIMIBE [Concomitant]
  18. LITHIUM CARBONATE [Concomitant]
  19. AMARYL [Concomitant]
  20. PLAVIX [Concomitant]
  21. LIPITOR [Concomitant]
  22. LOPID [Concomitant]

REACTIONS (17)
  - ABDOMINAL PAIN [None]
  - BLADDER TRABECULATION [None]
  - BLOOD CHOLESTEROL ABNORMAL [None]
  - CEREBROVASCULAR ACCIDENT [None]
  - CYSTITIS NONINFECTIVE [None]
  - DIABETES MELLITUS NON-INSULIN-DEPENDENT [None]
  - GLYCOSYLATED HAEMOGLOBIN INCREASED [None]
  - HAEMATURIA [None]
  - HEPATOMEGALY [None]
  - HYPERGLYCAEMIA [None]
  - HYPERINSULINISM [None]
  - HYPERLIPIDAEMIA [None]
  - NEPHROLITHIASIS [None]
  - RECTAL HAEMORRHAGE [None]
  - RENAL DISORDER [None]
  - TREATMENT NONCOMPLIANCE [None]
  - VISION BLURRED [None]
